FAERS Safety Report 13180573 (Version 2)
Quarter: 2017Q1

REPORT INFORMATION
  Report Type: Report from Study
  Country: US (occurrence: US)
  Receive Date: 20170202
  Receipt Date: 20170228
  Transmission Date: 20170428
  Serious: Yes (Other)
  Sender: FDA-Public Use
  Company Number: PHEH2017US003120

PATIENT
  Age: 58 Year
  Sex: Male
  Weight: 90.7 kg

DRUGS (2)
  1. OXCARBAZEPINE. [Suspect]
     Active Substance: OXCARBAZEPINE
     Indication: BIPOLAR DISORDER
     Dosage: 150 MG, (HS)
     Route: 048
     Dates: start: 201012, end: 201101
  2. TRILEPTAL [Suspect]
     Active Substance: OXCARBAZEPINE
     Indication: BIPOLAR DISORDER
     Dosage: 150 MG, (HS)
     Route: 048
     Dates: start: 201101

REACTIONS (8)
  - Dizziness [Recovered/Resolved]
  - Diplopia [Recovered/Resolved]
  - Drug intolerance [Unknown]
  - Nystagmus [Recovered/Resolved]
  - Ataxia [Recovered/Resolved]
  - Nausea [Recovered/Resolved]
  - Cerebral disorder [Unknown]
  - Product use issue [Unknown]

NARRATIVE: CASE EVENT DATE: 201012
